FAERS Safety Report 23406933 (Version 1)
Quarter: 2024Q1

REPORT INFORMATION
  Report Type: Report from Study
  Country: US (occurrence: None)
  Receive Date: 20240116
  Receipt Date: 20240116
  Transmission Date: 20240409
  Serious: Yes (Life-Threatening, Other)
  Sender: FDA-Public Use
  Company Number: 2024A009692

PATIENT
  Sex: Female

DRUGS (6)
  1. BREZTRI [Suspect]
     Active Substance: BUDESONIDE\FORMOTEROL\GLYCOPYRROLATE
     Route: 055
  2. SYMBICORT [Suspect]
     Active Substance: BUDESONIDE\FORMOTEROL FUMARATE DIHYDRATE
     Route: 055
  3. PULMICORT TURBUHALER [Suspect]
     Active Substance: BUDESONIDE
     Route: 055
  4. METHIMAZOLE [Concomitant]
     Active Substance: METHIMAZOLE
  5. CLARITIN [Concomitant]
     Active Substance: LORATADINE
  6. NICOTINE [Concomitant]
     Active Substance: NICOTINE

REACTIONS (10)
  - Chronic respiratory failure [Unknown]
  - Hypoxia [Unknown]
  - Pulmonary mass [Unknown]
  - Emphysema [Unknown]
  - Chronic obstructive pulmonary disease [Unknown]
  - Dyspnoea exertional [Unknown]
  - Anxiety [Unknown]
  - Inability to afford medication [Unknown]
  - COVID-19 [Unknown]
  - Upper-airway cough syndrome [Unknown]
